FAERS Safety Report 24197042 (Version 1)
Quarter: 2024Q3

REPORT INFORMATION
  Report Type: Spontaneous
  Country: CN (occurrence: CN)
  Receive Date: 20240810
  Receipt Date: 20240810
  Transmission Date: 20241017
  Serious: Yes (Other)
  Sender: AMGEN
  Company Number: CN-AMGEN-CHNSP2024154193

PATIENT
  Age: 74 Year
  Sex: Male
  Weight: 55 kg

DRUGS (3)
  1. CARFILZOMIB [Suspect]
     Active Substance: CARFILZOMIB
     Indication: Plasma cell myeloma
     Dosage: 32 MILLIGRAM, QD DAY 1-2
     Route: 042
     Dates: start: 20240704, end: 20240705
  2. CARFILZOMIB [Suspect]
     Active Substance: CARFILZOMIB
     Dosage: 43 MILLIGRAM, QD DAY 8-9
     Route: 042
     Dates: start: 20240710, end: 20240712
  3. CARFILZOMIB [Suspect]
     Active Substance: CARFILZOMIB
     Dosage: 43 MILLIGRAM, QD DAY 15-16
     Route: 042
     Dates: start: 20240717, end: 20240719

REACTIONS (1)
  - Electrocardiogram QT prolonged [Unknown]

NARRATIVE: CASE EVENT DATE: 20240726
